FAERS Safety Report 23943128 (Version 1)
Quarter: 2024Q2

REPORT INFORMATION
  Report Type: Spontaneous
  Country: US (occurrence: None)
  Receive Date: 20240605
  Receipt Date: 20240605
  Transmission Date: 20240716
  Serious: Yes (Other)
  Sender: FDA-Public Use
  Company Number: None

PATIENT
  Age: 50 Year
  Sex: Male
  Weight: 90 kg

DRUGS (1)
  1. DUPIXENT [Suspect]
     Active Substance: DUPILUMAB
     Indication: Nasal polyps
     Dates: start: 20230601, end: 20240501

REACTIONS (4)
  - Arthralgia [None]
  - Fatigue [None]
  - Herpes zoster [None]
  - Hepatic enzyme increased [None]

NARRATIVE: CASE EVENT DATE: 20240508
